FAERS Safety Report 7429371-9 (Version None)
Quarter: 2011Q2

REPORT INFORMATION
  Report Type: 
  Country: None (occurrence: None)
  Receive Date: 20110421
  Receipt Date: 20110412
  Transmission Date: 20111010
  Serious: Yes (Other)
  Sender: FDA-Public Use
  Company Number: US-ASTRAZENECA-2011SE10054

PATIENT
  Age: 66 Year
  Sex: Male
  Weight: 105 kg

DRUGS (2)
  1. CRESTOR [Suspect]
     Route: 048
  2. TOPROL-XL [Suspect]
     Route: 048

REACTIONS (4)
  - GENITAL NEOPLASM MALIGNANT MALE [None]
  - RENAL CANCER [None]
  - FALL [None]
  - TINEA CRURIS [None]
